FAERS Safety Report 20240737 (Version 1)
Quarter: 2021Q4

REPORT INFORMATION
  Report Type: Spontaneous
  Country: US (occurrence: None)
  Receive Date: 20211228
  Receipt Date: 20211228
  Transmission Date: 20220303
  Serious: No
  Sender: FDA-Public Use
  Company Number: None

PATIENT
  Age: 52 Year

DRUGS (1)
  1. BAMLANIVIMAB\ETESEVIMAB [Suspect]
     Active Substance: BAMLANIVIMAB\ETESEVIMAB
     Indication: Product used for unknown indication
     Dosage: OTHER FREQUENCY : ONCE;?
     Route: 042

REACTIONS (3)
  - Heart rate decreased [None]
  - Blood pressure decreased [None]
  - Infusion related reaction [None]

NARRATIVE: CASE EVENT DATE: 20211217
